FAERS Safety Report 8203580-3 (Version None)
Quarter: 2012Q1

REPORT INFORMATION
  Report Type: 
  Country: None (occurrence: None)
  Receive Date: 20120313
  Receipt Date: 20120301
  Transmission Date: 20120608
  Serious: No
  Sender: FDA-Public Use
  Company Number: US-BIOGENIDEC-2012BI008444

PATIENT
  Sex: Female

DRUGS (22)
  1. AVONEX [Concomitant]
     Indication: MULTIPLE SCLEROSIS
     Route: 030
  2. VALIUM [Concomitant]
  3. FISH OIL [Concomitant]
  4. MAXALT [Concomitant]
  5. ASPIRIN [Concomitant]
  6. MELOXICAM [Concomitant]
  7. BENADRYL [Concomitant]
  8. GENERIC ZYRTEC [Concomitant]
  9. HYDROCODONE BITARTRATE [Concomitant]
  10. RITALIN [Concomitant]
  11. DETROL LA [Concomitant]
  12. MECLIZINE [Concomitant]
  13. BACLOFEN [Concomitant]
  14. WELLBUTRIN [Concomitant]
  15. TYSABRI [Suspect]
     Indication: MULTIPLE SCLEROSIS
     Route: 042
     Dates: start: 20081105, end: 20111003
  16. MULTI-VITAMIN [Concomitant]
  17. NEXIUM [Concomitant]
  18. OMNARIS [Concomitant]
  19. CRANBERRY SUPPLEMENT [Concomitant]
  20. SUDAFED 12 HOUR [Concomitant]
  21. GABAPENTIN [Concomitant]
  22. AMBIEN CR [Concomitant]

REACTIONS (10)
  - SKIN LESION [None]
  - GENITAL HERPES [None]
  - STRESS [None]
  - VESTIBULAR DISORDER [None]
  - VERTIGO [None]
  - IMMUNE SYSTEM DISORDER [None]
  - ORAL HERPES [None]
  - POOR QUALITY SLEEP [None]
  - SINUSITIS [None]
  - SINUS DISORDER [None]
